FAERS Safety Report 5530499-9 (Version None)
Quarter: 2007Q4

REPORT INFORMATION
  Report Type: 
  Country: None (occurrence: None)
  Receive Date: 20071127
  Receipt Date: 20071127
  Transmission Date: 20080405
  Serious: Yes (Death)
  Sender: FDA-Public Use
  Company Number: None

PATIENT
  Age: 37 Year
  Sex: Male
  Weight: 76 kg

DRUGS (11)
  1. TEMOZOLOMIDE [Suspect]
     Indication: GLIOBLASTOMA MULTIFORME
     Dosage: 50MG/M2 PO DAILY
     Route: 048
     Dates: start: 20070727, end: 20070920
  2. BEVACIZUMAB (GENENTECH) [Suspect]
     Indication: GLIOBLASTOMA MULTIFORME
     Dosage: 10 MG/KG IV Q2 WEEKS
     Route: 042
     Dates: start: 20070727, end: 20070920
  3. LOVENOX [Concomitant]
  4. NEXIUM [Concomitant]
  5. RITALIN [Concomitant]
  6. KEPPRA [Concomitant]
  7. DEPAKOTE [Concomitant]
  8. DEXAMETHASONE TAB [Concomitant]
  9. TESTOSTERONE [Concomitant]
  10. EFFEXOR XR [Concomitant]
  11. IBUPROFEN [Concomitant]

REACTIONS (8)
  - ABASIA [None]
  - ACTIVITIES OF DAILY LIVING IMPAIRED [None]
  - DISEASE PROGRESSION [None]
  - GENERAL PHYSICAL HEALTH DETERIORATION [None]
  - GLIOBLASTOMA [None]
  - PANCYTOPENIA [None]
  - POST PROCEDURAL HAEMORRHAGE [None]
  - RECURRENT CANCER [None]
